FAERS Safety Report 15752507 (Version 1)
Quarter: 2018Q4

REPORT INFORMATION
  Report Type: Report from Study
  Country: US (occurrence: US)
  Receive Date: 20181221
  Receipt Date: 20181221
  Transmission Date: 20190205
  Serious: Yes (Other)
  Sender: FDA-Public Use
  Company Number: US-JAZZ-2018-US-016371

PATIENT
  Sex: Female

DRUGS (29)
  1. XYREM [Suspect]
     Active Substance: SODIUM OXYBATE
     Dosage: 2.5 G, BID
     Route: 048
     Dates: start: 200702, end: 200807
  2. MEFENAMIC ACID. [Concomitant]
     Active Substance: MEFENAMIC ACID
  3. NITROGLYCERIN. [Concomitant]
     Active Substance: NITROGLYCERIN
  4. FISH OIL [Concomitant]
     Active Substance: FISH OIL
  5. VENTOLIN HFA [Concomitant]
     Active Substance: ALBUTEROL SULFATE
  6. LORATADINE. [Concomitant]
     Active Substance: LORATADINE
  7. GABAPENTIN. [Concomitant]
     Active Substance: GABAPENTIN
  8. ADDERALL [Concomitant]
     Active Substance: AMPHETAMINE ASPARTATE\AMPHETAMINE SULFATE\DEXTROAMPHETAMINE SACCHARATE\DEXTROAMPHETAMINE SULFATE
  9. LEVOTHYROXINE. [Concomitant]
     Active Substance: LEVOTHYROXINE
  10. XYREM [Suspect]
     Active Substance: SODIUM OXYBATE
     Indication: CATAPLEXY
     Dosage: 4 G, FIRST DOSE
     Route: 048
     Dates: start: 200411, end: 200604
  11. XYREM [Suspect]
     Active Substance: SODIUM OXYBATE
     Dosage: DOSE ADJUSTMENT
     Route: 048
     Dates: start: 200807, end: 201511
  12. TOCOPHEROL [Concomitant]
     Active Substance: TOCOPHEROL
  13. XYREM [Suspect]
     Active Substance: SODIUM OXYBATE
     Dosage: 3 G, SECOND DOSE
     Route: 048
     Dates: start: 200411, end: 200604
  14. NAPROXEN. [Concomitant]
     Active Substance: NAPROXEN
  15. PENICILLIN VK [Concomitant]
     Active Substance: PENICILLIN V POTASSIUM
  16. CYANOCOBALAMIN. [Concomitant]
     Active Substance: CYANOCOBALAMIN
  17. LISINOPRIL/HCTZ [Concomitant]
     Active Substance: HYDROCHLOROTHIAZIDE\LISINOPRIL
  18. XYREM [Suspect]
     Active Substance: SODIUM OXYBATE
     Indication: NARCOLEPSY
     Dosage: 2.25 G, BID
     Route: 048
     Dates: start: 200210, end: 200411
  19. TRAMADOL HCL [Concomitant]
     Active Substance: TRAMADOL HYDROCHLORIDE
  20. CITALOPRAM [Concomitant]
     Active Substance: CITALOPRAM HYDROBROMIDE
  21. RITALIN [Concomitant]
     Active Substance: METHYLPHENIDATE HYDROCHLORIDE
  22. XYREM [Suspect]
     Active Substance: SODIUM OXYBATE
     Dosage: 2.5 G, BID
     Route: 048
     Dates: start: 200612, end: 200701
  23. CEFALEXIN [Concomitant]
     Active Substance: CEPHALEXIN
  24. FISH OIL CONCENTRATE [Concomitant]
     Active Substance: FISH OIL
  25. XYREM [Suspect]
     Active Substance: SODIUM OXYBATE
     Dosage: 2.5 G, BID
     Route: 048
     Dates: start: 201511
  26. FLUTICASONE PROPIONATE. [Concomitant]
     Active Substance: FLUTICASONE PROPIONATE
  27. HYDROCORTISONE BUTYRATE. [Concomitant]
     Active Substance: HYDROCORTISONE BUTYRATE
  28. ASPIRIN EC [Concomitant]
     Active Substance: ASPIRIN
  29. METHYLPHENIDATE. [Concomitant]
     Active Substance: METHYLPHENIDATE

REACTIONS (6)
  - Arthropathy [Not Recovered/Not Resolved]
  - Tendon pain [Not Recovered/Not Resolved]
  - Muscle spasms [Recovering/Resolving]
  - Synovial cyst [Not Recovered/Not Resolved]
  - Back disorder [Not Recovered/Not Resolved]
  - Nasopharyngitis [Recovered/Resolved]
